FAERS Safety Report 20541120 (Version 1)
Quarter: 2022Q1

REPORT INFORMATION
  Report Type: Spontaneous
  Country: US (occurrence: US)
  Receive Date: 20220302
  Receipt Date: 20220302
  Transmission Date: 20220423
  Serious: Yes (Hospitalization)
  Sender: FDA-Public Use
  Company Number: US-JNJFOC-20211037882

PATIENT
  Age: 6 Decade
  Sex: Female
  Weight: 109.87 kg

DRUGS (1)
  1. XARELTO [Suspect]
     Active Substance: RIVAROXABAN
     Indication: Thrombosis
     Dosage: SL NO: 100029452430
     Route: 048

REACTIONS (1)
  - Thrombotic stroke [Unknown]

NARRATIVE: CASE EVENT DATE: 20211014
